FAERS Safety Report 23308183 (Version 1)
Quarter: 2023Q4

REPORT INFORMATION
  Report Type: Spontaneous
  Country: JP (occurrence: JP)
  Receive Date: 20231218
  Receipt Date: 20231218
  Transmission Date: 20240110
  Serious: Yes (Other)
  Sender: FDA-Public Use
  Company Number: JP-BAYER-2023A177145

PATIENT
  Age: 64 Year
  Sex: Female
  Weight: 59.6 kg

DRUGS (4)
  1. NEXAVAR [Suspect]
     Active Substance: SORAFENIB
     Indication: Thyroid cancer
     Dosage: UNK
  2. LENVATINIB [Concomitant]
     Active Substance: LENVATINIB
     Indication: Neoplasm malignant
     Dosage: UNK
  3. ALFAROL [Concomitant]
     Active Substance: ALFACALCIDOL
     Dosage: 0.25?G
     Dates: end: 20230509
  4. URSO [Concomitant]
     Active Substance: URSODIOL
     Dosage: 600 MG
     Dates: start: 20220830

REACTIONS (3)
  - Thyroid cancer [None]
  - Metastases to lung [None]
  - Metastases to pleura [None]

NARRATIVE: CASE EVENT DATE: 20230117
